FAERS Safety Report 19921146 (Version 3)
Quarter: 2022Q3

REPORT INFORMATION
  Report Type: Report from Study
  Country: US (occurrence: US)
  Receive Date: 20211006
  Receipt Date: 20220830
  Transmission Date: 20221027
  Serious: Yes (Death, Hospitalization)
  Sender: FDA-Public Use
  Company Number: US-INSMED, INC.-2021-09612-US

PATIENT
  Sex: Female

DRUGS (1)
  1. ARIKAYCE [Suspect]
     Active Substance: AMIKACIN
     Indication: Mycobacterium avium complex infection
     Dosage: 590 MILLIGRAM, QD
     Route: 055
     Dates: start: 20181227

REACTIONS (9)
  - Open fracture [Fatal]
  - Central venous catheterisation [Unknown]
  - Mycobacterium avium complex infection [Fatal]
  - Asthma [Fatal]
  - Lung disorder [Fatal]
  - Hospitalisation [Unknown]
  - Dyspnoea [Unknown]
  - Drug ineffective [Unknown]
  - Therapy interrupted [Unknown]
